FAERS Safety Report 18195103 (Version 4)
Quarter: 2020Q4

REPORT INFORMATION
  Report Type: Report from Study
  Country: US (occurrence: US)
  Receive Date: 20200825
  Receipt Date: 20201201
  Transmission Date: 20210113
  Serious: No
  Sender: FDA-Public Use
  Company Number: NVSC2020US233276

PATIENT
  Age: 63 Year
  Sex: Male

DRUGS (2)
  1. JARDIANCE [Concomitant]
     Active Substance: EMPAGLIFLOZIN
     Indication: PRODUCT USED FOR UNKNOWN INDICATION
     Dosage: UNK
     Route: 065
  2. ENTRESTO [Suspect]
     Active Substance: SACUBITRIL\VALSARTAN
     Indication: PRODUCT USED FOR UNKNOWN INDICATION
     Dosage: 97 MG, BID (97/103MG)
     Route: 048
     Dates: start: 202007

REACTIONS (3)
  - Neck pain [Unknown]
  - Dyspnoea [Recovered/Resolved]
  - Ejection fraction abnormal [Unknown]

NARRATIVE: CASE EVENT DATE: 20200818
